FAERS Safety Report 6248826-6 (Version None)
Quarter: 2009Q2

REPORT INFORMATION
  Report Type: 
  Country: None (occurrence: None)
  Receive Date: 20090629
  Receipt Date: 20090617
  Transmission Date: 20091009
  Serious: No
  Sender: FDA-Public Use
  Company Number: US-ELI_LILLY_AND_COMPANY-US200906004756

PATIENT
  Age: 45 Year
  Sex: Female

DRUGS (2)
  1. CYMBALTA [Suspect]
     Indication: DEPRESSION
     Dosage: 90 MG, UNK
     Dates: start: 20090101, end: 20090101
  2. CYMBALTA [Suspect]
     Dosage: 1 D/F, UNK
     Dates: start: 20090101, end: 20090101

REACTIONS (1)
  - HEPATIC ENZYME INCREASED [None]
